FAERS Safety Report 17448352 (Version 1)
Quarter: 2020Q1

REPORT INFORMATION
  Report Type: Spontaneous
  Country: US (occurrence: US)
  Receive Date: 20200223
  Receipt Date: 20200223
  Transmission Date: 20200409
  Serious: Yes (Other)
  Sender: FDA-Public Use
  Company Number: US-B.I. PHARMACEUTICALS,INC./RIDGEFIELD-2020-BI-009436

PATIENT
  Age: 35 Year
  Sex: Male

DRUGS (1)
  1. MOBIC [Suspect]
     Active Substance: MELOXICAM
     Indication: BACK PAIN
     Route: 065

REACTIONS (6)
  - Glomus tumour [Unknown]
  - Dizziness [Unknown]
  - Weight decreased [Unknown]
  - Abdominal tenderness [Unknown]
  - Pallor [Unknown]
  - Faeces discoloured [Unknown]
